FAERS Safety Report 6115880-1 (Version None)
Quarter: 2009Q1

REPORT INFORMATION
  Report Type: 
  Country: None (occurrence: None)
  Receive Date: 20090311
  Receipt Date: 20090225
  Transmission Date: 20090719
  Serious: Yes (Death, Hospitalization)
  Sender: FDA-Public Use
  Company Number: DAV-AE-MTX-09-020

PATIENT
  Age: 5 Year
  Sex: Male

DRUGS (6)
  1. METHOTREXATE [Suspect]
     Indication: BRAIN NEOPLASM MALIGNANT
     Dosage: 400 MG/KG
  2. CISPLATIN [Concomitant]
  3. VINCRISTINE [Concomitant]
  4. ETOPOSIDE [Concomitant]
  5. CYCLOPHOSPHAMIDE [Concomitant]
  6. NEUPOGEN [Concomitant]

REACTIONS (2)
  - HEPATOTOXICITY [None]
  - LEUKAEMIA [None]
